FAERS Safety Report 19174851 (Version 1)
Quarter: 2021Q2

REPORT INFORMATION
  Report Type: Other
  Country: NL (occurrence: NL)
  Receive Date: 20210424
  Receipt Date: 20210424
  Transmission Date: 20210717
  Serious: Yes (Hospitalization)
  Sender: FDA-Public Use
  Company Number: NL-ASPP-GLO2014NL015486

PATIENT

DRUGS (26)
  1. FENTANYL. [Concomitant]
     Active Substance: FENTANYL
     Dosage: CONTINUOUS
     Route: 062
     Dates: start: 20140729, end: 20140901
  2. DICLOFENAC [Concomitant]
     Active Substance: DICLOFENAC
     Indication: FRACTURE
     Dosage: 50 MG, QD
     Route: 041
     Dates: start: 20140618
  3. OXYCODON [Concomitant]
     Active Substance: OXYCODONE
     Indication: BACK PAIN
     Dosage: 40 MILLIGRAM
     Route: 048
     Dates: start: 20140801, end: 20140901
  4. FENTANYL. [Concomitant]
     Active Substance: FENTANYL
     Dosage: CONTINUOUS
     Route: 062
     Dates: start: 20140925
  5. PARACETAMOL [Concomitant]
     Active Substance: ACETAMINOPHEN
     Indication: FRACTURE
     Dosage: 1000 MG, QD
     Route: 041
     Dates: start: 20140618
  6. PAMIDRONATE [Concomitant]
     Active Substance: PAMIDRONATE DISODIUM
     Indication: OSTEOPOROSIS PROPHYLAXIS
     Dosage: 30 MILLIGRAM PER 3 MINS
     Route: 041
     Dates: start: 20140303
  7. VALACICLOVIR [Concomitant]
     Active Substance: VALACYCLOVIR HYDROCHLORIDE
     Indication: PROPHYLAXIS
     Dosage: 1000 MILLIGRAM
     Route: 048
     Dates: start: 20110628
  8. REVLIMID [Suspect]
     Active Substance: LENALIDOMIDE
     Indication: PLASMA CELL MYELOMA
     Dosage: 25 MG
     Route: 048
     Dates: start: 20131007
  9. PANTOPRAZOLE [Concomitant]
     Active Substance: PANTOPRAZOLE
     Indication: PROPHYLAXIS AGAINST GASTROINTESTINAL ULCER
     Dosage: 40 MILLIGRAM
     Route: 048
     Dates: start: 20131001
  10. VENLAFAXINE [Concomitant]
     Active Substance: VENLAFAXINE HYDROCHLORIDE
     Indication: FRACTURE
     Dosage: 300 MILLIGRAM
     Route: 048
     Dates: start: 20141003
  11. OXYCODON [Concomitant]
     Active Substance: OXYCODONE
     Indication: FRACTURE
     Dosage: 10 MG, QD
     Route: 048
     Dates: start: 20140520
  12. NADROPANNE [Concomitant]
     Indication: THROMBOSIS PROPHYLAXIS
     Dosage: 2850 DOSAGE FORMS
     Route: 048
     Dates: start: 20131004
  13. TRIMETHOPRIM SULFAMETHOXAZOLE [Concomitant]
     Active Substance: SULFAMETHOXAZOLE\TRIMETHOPRIM
     Indication: ANTIBIOTIC PROPHYLAXIS
     Dosage: 400/80
     Route: 048
     Dates: start: 20130920
  14. DEXAMETHASONE. [Suspect]
     Active Substance: DEXAMETHASONE
     Indication: PLASMA CELL MYELOMA
     Dosage: 20 MG
     Route: 048
     Dates: start: 20131007
  15. PEGFILGRASTIM [Concomitant]
     Active Substance: PEGFILGRASTIM
     Indication: PROPHYLAXIS
     Dosage: 6 MILLIGRAM, 1 DOSE MONTHLY
     Route: 058
     Dates: start: 20140818, end: 20140930
  16. DICLOFENAC [Concomitant]
     Active Substance: DICLOFENAC
     Indication: BACK PAIN
     Dosage: UNK
     Route: 065
  17. KIOVIG [Concomitant]
     Active Substance: HUMAN IMMUNOGLOBULIN G
     Dosage: 100 MG, 1 DOSE MONTHLY
     Route: 041
     Dates: start: 20140929
  18. CALCIUM CARBONATE. [Concomitant]
     Active Substance: CALCIUM CARBONATE
     Indication: OSTEOPOROSIS PROPHYLAXIS
     Dosage: 1.25 GRAM
     Route: 048
     Dates: start: 20130920
  19. VENLAFAXINE [Concomitant]
     Active Substance: VENLAFAXINE HYDROCHLORIDE
     Dosage: 412.5 MG, QD
     Route: 048
     Dates: start: 20140512
  20. FENTANYL. [Concomitant]
     Active Substance: FENTANYL
     Indication: PRODUCT USED FOR UNKNOWN INDICATION
     Dosage: CONTINUOUS
     Route: 062
     Dates: start: 20140901, end: 20140925
  21. PARACETAMOL [Concomitant]
     Active Substance: ACETAMINOPHEN
     Indication: BACK PAIN
     Dosage: 1 GRAM
     Route: 041
     Dates: start: 20140929, end: 20140929
  22. KIOVIG [Concomitant]
     Active Substance: HUMAN IMMUNOGLOBULIN G
     Indication: PROPHYLAXIS
     Dosage: 10000 MILLIGRAM, 1 DOSE MONTHLY
     Route: 041
     Dates: start: 2009
  23. OXYCODON [Concomitant]
     Active Substance: OXYCODONE
     Dosage: 15 MG, QD
     Route: 048
     Dates: start: 20140929
  24. FUROSEMIDE. [Concomitant]
     Active Substance: FUROSEMIDE
     Indication: PRODUCT USED FOR UNKNOWN INDICATION
     Dosage: UNK
     Route: 065
  25. CLODRONATE ACID [Concomitant]
     Indication: BONE LESION
     Dosage: UNK
     Route: 065
  26. FOLIC ACID. [Concomitant]
     Active Substance: FOLIC ACID
     Indication: ANAEMIA
     Dosage: 5 MILLIGRAM
     Route: 048
     Dates: start: 20140901

REACTIONS (1)
  - Spinal pain [Recovered/Resolved]

NARRATIVE: CASE EVENT DATE: 20140925
